FAERS Safety Report 24909662 (Version 3)
Quarter: 2025Q1

REPORT INFORMATION
  Report Type: Report from Study
  Country: IN (occurrence: IN)
  Receive Date: 20250131
  Receipt Date: 20250313
  Transmission Date: 20250408
  Serious: Yes (Death)
  Sender: ROCHE
  Company Number: IN-ROCHE-10000186719

PATIENT
  Age: 31 Year
  Sex: Male
  Weight: 83 kg

DRUGS (3)
  1. TECENTRIQ [Suspect]
     Active Substance: ATEZOLIZUMAB
     Indication: Hepatocellular carcinoma
     Dosage: 2ND AND 3RD CYCLE INTERVAL- 22ND DAY?5TH CYCLE INTERVAL- 24TH DAY
     Route: 042
     Dates: start: 20240928
  2. TECENTRIQ [Suspect]
     Active Substance: ATEZOLIZUMAB
     Indication: Liver disorder
  3. TECENTRIQ [Suspect]
     Active Substance: ATEZOLIZUMAB
     Indication: Portal vein thrombosis

REACTIONS (3)
  - Blood albumin decreased [Unknown]
  - Off label use [Unknown]
  - Platelet count decreased [Fatal]

NARRATIVE: CASE EVENT DATE: 20250227
